FAERS Safety Report 10486266 (Version 1)
Quarter: 2014Q3

REPORT INFORMATION
  Report Type: Spontaneous
  Country: US (occurrence: None)
  Receive Date: 20140930
  Receipt Date: 20140930
  Transmission Date: 20150326
  Serious: Yes (Other)
  Sender: FDA-Public Use
  Company Number: None

PATIENT
  Age: 23 Year
  Sex: Male
  Weight: 80 kg

DRUGS (1)
  1. TEGRETOL CR [Suspect]
     Active Substance: CARBAMAZEPINE
     Indication: MUSCLE SPASMS
     Dosage: 1 PILL/DAY ( 400 MG) AT BEDTIME TAKEN BY MOUTH
     Route: 048
     Dates: start: 20080601, end: 20140720

REACTIONS (4)
  - Testicular pain [None]
  - Back disorder [None]
  - Urinary retention [None]
  - Pelvic pain [None]

NARRATIVE: CASE EVENT DATE: 20140620
